FAERS Safety Report 4837320-2 (Version None)
Quarter: 2005Q4

REPORT INFORMATION
  Report Type: 
  Country: None (occurrence: None)
  Receive Date: 20051128
  Receipt Date: 20051024
  Transmission Date: 20060501
  Serious: Yes (Other)
  Sender: FDA-Public Use
  Company Number: US-BRISTOL-MYERS SQUIBB COMPANY-13155403

PATIENT
  Age: 69 Year
  Sex: Male
  Weight: 140 kg

DRUGS (4)
  1. ERBITUX [Suspect]
     Indication: COLON CANCER METASTATIC
     Dosage: THERAPY START DATE JULY 2004.
     Route: 042
     Dates: start: 20040701
  2. ACCUPRIL [Concomitant]
  3. TOPROL-XL [Concomitant]
  4. ACTOS [Concomitant]

REACTIONS (1)
  - BLOOD MAGNESIUM DECREASED [None]
